FAERS Safety Report 6878655-1 (Version None)
Quarter: 2010Q3

REPORT INFORMATION
  Report Type: 
  Country: None (occurrence: None)
  Receive Date: 20100728
  Receipt Date: 20100726
  Transmission Date: 20110219
  Serious: Yes (Congenital Anomaly)
  Sender: FDA-Public Use
  Company Number: A0872407A

PATIENT
  Sex: Male

DRUGS (10)
  1. COMBIVIR [Suspect]
     Indication: HIV INFECTION
     Dates: start: 20021007, end: 20030315
  2. VIDEX [Suspect]
     Indication: HIV INFECTION
     Dates: start: 20020531, end: 20021007
  3. VIRACEPT [Suspect]
     Indication: HIV INFECTION
     Dates: start: 20021007, end: 20030315
  4. TRIMETHOPRIM + SULFAMETHOXAZOLE [Concomitant]
  5. ACYCLOVIR [Concomitant]
  6. ALCOHOL [Concomitant]
  7. DIPHENHYDRAMINE [Concomitant]
  8. MARIJUANA [Concomitant]
  9. PREDNISONE [Concomitant]
  10. SULFAMETHOXAZOLE [Concomitant]

REACTIONS (2)
  - CONGENITAL MEGAURETER [None]
  - DRUG EXPOSURE DURING PREGNANCY [None]
